FAERS Safety Report 23935377 (Version 1)
Quarter: 2024Q2

REPORT INFORMATION
  Report Type: Other
  Country: CN (occurrence: None)
  Receive Date: 20240604
  Receipt Date: 20240604
  Transmission Date: 20240717
  Serious: Yes (Death, Other)
  Sender: FDA-Public Use
  Company Number: CN-ROCHE-3573626

PATIENT
  Age: 49 Year
  Sex: Male

DRUGS (1)
  1. COLUMVI [Suspect]
     Active Substance: GLOFITAMAB-GXBM
     Indication: Diffuse large B-cell lymphoma
     Dosage: 10 MG DAY 1, 8 DOSING BY INTRAVENOUS INFUSION, 30 MG DAY 15 DOSING
     Route: 042

REACTIONS (3)
  - Ascites [Fatal]
  - Cytokine release syndrome [Unknown]
  - Movement disorder [Unknown]

NARRATIVE: CASE EVENT DATE: 20240401
